FAERS Safety Report 4522916-8 (Version None)
Quarter: 2004Q4

REPORT INFORMATION
  Report Type: 
  Country: None (occurrence: None)
  Receive Date: 20041101
  Receipt Date: 20040830
  Transmission Date: 20050328
  Serious: Yes (Other)
  Sender: FDA-Public Use
  Company Number: HQWYE779702SEP04

PATIENT
  Sex: Female

DRUGS (1)
  1. PREMARIN [Suspect]
     Dosage: DAILY, ORAL
     Route: 048
     Dates: start: 19800101, end: 20020401

REACTIONS (1)
  - CEREBROVASCULAR ACCIDENT [None]
